FAERS Safety Report 8591988-6 (Version None)
Quarter: 2012Q3

REPORT INFORMATION
  Report Type: 
  Country: None (occurrence: None)
  Receive Date: 20120814
  Receipt Date: 20120807
  Transmission Date: 20120928
  Serious: Yes (Hospitalization, Other)
  Sender: FDA-Public Use
  Company Number: JP-VERTEX PHARMACEUTICALS INC.-AE-2012-003363

PATIENT
  Age: 61 Year
  Sex: Female

DRUGS (15)
  1. SELTEPNON [Concomitant]
     Route: 048
     Dates: start: 20120221
  2. PEG-INTRON [Concomitant]
     Indication: HEPATITIS C
     Route: 058
     Dates: start: 20120221
  3. REBETOL [Concomitant]
     Indication: HEPATITIS C
     Route: 048
     Dates: start: 20120221, end: 20120301
  4. FAMOSTAGINE D [Concomitant]
     Route: 048
  5. EPINASTINE HYDROCHLORIDE [Concomitant]
     Route: 048
     Dates: start: 20120221
  6. CANDESARTAN CILEXETIL [Concomitant]
     Route: 048
     Dates: start: 20120221
  7. PREDNISOLONE [Concomitant]
     Route: 048
     Dates: end: 20120409
  8. REBETOL [Concomitant]
     Route: 048
     Dates: start: 20120302
  9. PEG-INTRON [Concomitant]
     Route: 058
     Dates: end: 20120410
  10. GASMOTIN [Concomitant]
     Route: 048
     Dates: start: 20120221
  11. TELAVIC [Suspect]
     Indication: HEPATITIS C
     Route: 048
     Dates: start: 20120221, end: 20120229
  12. TELAVIC [Suspect]
     Route: 048
     Dates: start: 20120301
  13. PEG-INTRON [Concomitant]
     Route: 058
     Dates: start: 20120417
  14. FAMOSTAGINE D [Concomitant]
     Route: 048
     Dates: start: 20120207
  15. EPINASTINE HYDROCHLORIDE [Concomitant]
     Route: 048
     Dates: start: 20120327

REACTIONS (2)
  - DRUG ERUPTION [None]
  - NEUTROPHIL COUNT DECREASED [None]
